FAERS Safety Report 10098207 (Version 2)
Quarter: 2014Q2

REPORT INFORMATION
  Report Type: Spontaneous
  Country: US (occurrence: US)
  Receive Date: 20140423
  Receipt Date: 20140423
  Transmission Date: 20141212
  Serious: Yes (Other)
  Sender: FDA-Public Use
  Company Number: US-BRISTOL-MYERS SQUIBB COMPANY-20087581

PATIENT
  Age: 72 Year
  Sex: Female
  Weight: 62.13 kg

DRUGS (3)
  1. YERVOY [Suspect]
     Dosage: COMPLETED 10 DOSES
     Dates: start: 2010
  2. LISINOPRIL + HCTZ [Concomitant]
     Indication: BLOOD PRESSURE
  3. SYNTHROID [Concomitant]

REACTIONS (2)
  - Neuropathy peripheral [Not Recovered/Not Resolved]
  - Nasopharyngitis [Unknown]
